FAERS Safety Report 9969607 (Version 1)
Quarter: 2014Q1

REPORT INFORMATION
  Report Type: Spontaneous
  Country: US (occurrence: None)
  Receive Date: 20140304
  Receipt Date: 20140304
  Transmission Date: 20141002
  Serious: Yes (Other)
  Sender: FDA-Public Use
  Company Number: None

PATIENT
  Age: 60 Year
  Sex: Male
  Weight: 72.58 kg

DRUGS (14)
  1. ISENTRESS [Suspect]
     Indication: HIV INFECTION
     Dosage: 1 TABLET, BID, ORAL
     Route: 048
  2. ISENTRESS [Suspect]
     Indication: ACQUIRED IMMUNODEFICIENCY SYNDROME
     Dosage: 1 TABLET, BID, ORAL
     Route: 048
  3. EPZICOM [Concomitant]
  4. INTELENCE [Concomitant]
  5. AMLODIPINE [Concomitant]
  6. DIOVAN [Concomitant]
  7. OMEPRAZOLE [Concomitant]
  8. POTASSIUM CITRATE [Concomitant]
  9. WELCHOL [Concomitant]
  10. VITAMIN D [Concomitant]
  11. VITAMIN E [Suspect]
  12. COQ10 [Concomitant]
  13. JUVENON [Concomitant]
  14. FEOSOL [Concomitant]

REACTIONS (2)
  - Drug interaction [None]
  - Drug level decreased [None]
